FAERS Safety Report 7532197-9 (Version None)
Quarter: 2011Q2

REPORT INFORMATION
  Report Type: 
  Country: None (occurrence: None)
  Receive Date: 20110608
  Receipt Date: 20110603
  Transmission Date: 20111010
  Serious: Yes (Hospitalization, Other)
  Sender: FDA-Public Use
  Company Number: US-ABBOTT-11P-163-0729755-00

PATIENT
  Sex: Male

DRUGS (15)
  1. METHOTREXATE [Concomitant]
  2. VANCOMYCIN [Suspect]
     Indication: INTERVERTEBRAL DISCITIS
  3. UNKNOWN LIPID MEDICATION [Concomitant]
     Indication: LIPIDS ABNORMAL
  4. UNKNOWN EPIDURAL MEDICATION [Suspect]
     Indication: BONE PAIN
  5. DOXYCYCLINE [Suspect]
     Indication: OSTEOMYELITIS
  6. UNKNOWN BLOOD PRESSURE MEDICATION [Concomitant]
     Indication: BLOOD PRESSURE ABNORMAL
  7. UNKNOWN ACID REFLUX MEDICATION [Concomitant]
     Indication: GASTROOESOPHAGEAL REFLUX DISEASE
  8. UNKNOWN EPIDURAL MEDICATION [Suspect]
     Indication: INTERVERTEBRAL DISC PROTRUSION
     Dates: start: 20091202, end: 20091202
  9. VANCOMYCIN [Suspect]
     Indication: STAPHYLOCOCCAL INFECTION
     Dosage: HOME INFUSIONS
     Dates: start: 20100101, end: 20100201
  10. DOXYCYCLINE [Suspect]
     Indication: INTERVERTEBRAL DISCITIS
  11. HUMIRA [Suspect]
     Indication: PSORIATIC ARTHROPATHY
     Route: 058
     Dates: end: 20100101
  12. DOXYCYCLINE [Suspect]
     Indication: STAPHYLOCOCCAL INFECTION
     Route: 048
     Dates: start: 20100301
  13. INSULIN [Concomitant]
     Indication: PRODUCT USED FOR UNKNOWN INDICATION
  14. VANCOMYCIN [Suspect]
     Indication: OSTEOMYELITIS
     Dates: start: 20100301, end: 20100301
  15. METHOTREXATE [Concomitant]
     Indication: PSORIATIC ARTHROPATHY
     Dates: start: 20110501

REACTIONS (12)
  - BACK PAIN [None]
  - RED BLOOD CELL SEDIMENTATION RATE INCREASED [None]
  - INTERVERTEBRAL DISCITIS [None]
  - BONE PAIN [None]
  - C-REACTIVE PROTEIN INCREASED [None]
  - STAPHYLOCOCCAL INFECTION [None]
  - DIARRHOEA [None]
  - OSTEOMYELITIS [None]
  - INTERVERTEBRAL DISC PROTRUSION [None]
  - CHILLS [None]
  - PSORIATIC ARTHROPATHY [None]
  - CLOSTRIDIAL INFECTION [None]
